FAERS Safety Report 20729785 (Version 1)
Quarter: 2022Q2

REPORT INFORMATION
  Report Type: Other
  Country: US (occurrence: None)
  Receive Date: 20220420
  Receipt Date: 20220420
  Transmission Date: 20220721
  Serious: Yes (Death)
  Sender: FDA-Public Use
  Company Number: US-ROCHE-3078771

PATIENT
  Sex: Male

DRUGS (1)
  1. RITUXAN [Suspect]
     Active Substance: RITUXIMAB
     Indication: Product used for unknown indication
     Route: 065

REACTIONS (5)
  - Acute respiratory failure [Fatal]
  - Acute respiratory distress syndrome [Fatal]
  - COVID-19 [Fatal]
  - Pneumonia bacterial [Fatal]
  - Chronic obstructive pulmonary disease [Fatal]
